FAERS Safety Report 13399645 (Version 1)
Quarter: 2017Q2

REPORT INFORMATION
  Report Type: Other
  Country: DE (occurrence: DE)
  Receive Date: 20170404
  Receipt Date: 20170404
  Transmission Date: 20170830
  Serious: No
  Sender: FDA-Public Use
  Company Number: DE-LUPIN PHARMACEUTICALS INC.-E2B_00006934

PATIENT
  Age: 47 Year
  Sex: Male
  Weight: 85 kg

DRUGS (1)
  1. SERTRALINE [Suspect]
     Active Substance: SERTRALINE HYDROCHLORIDE
     Indication: DEPRESSED MOOD
     Dosage: 1* 50MG
     Route: 048
     Dates: start: 20161129

REACTIONS (2)
  - Anorgasmia [Unknown]
  - Ejaculation failure [Unknown]

NARRATIVE: CASE EVENT DATE: 20161129
